FAERS Safety Report 5868404-8 (Version None)
Quarter: 2008Q3

REPORT INFORMATION
  Report Type: 
  Country: None (occurrence: None)
  Receive Date: 20080903
  Receipt Date: 20080829
  Transmission Date: 20090109
  Serious: Yes (Hospitalization)
  Sender: FDA-Public Use
  Company Number: FR-WYE-G02080208

PATIENT
  Sex: Male

DRUGS (10)
  1. SIROLIMUS [Suspect]
     Indication: PROPHYLAXIS AGAINST TRANSPLANT REJECTION
     Route: 048
     Dates: end: 20080214
  2. CORTANCYL [Concomitant]
     Dosage: UNKNOWN
     Route: 048
  3. LASIX [Concomitant]
     Dosage: UNKNOWN
  4. ELISOR [Concomitant]
     Dosage: UNKNOWN
     Route: 048
  5. FONZYLANE [Concomitant]
     Dosage: UNKNOWN
  6. NEORAL [Concomitant]
     Dosage: 125 MG TOTAL DAILY
     Route: 048
     Dates: end: 20080204
  7. NEORAL [Concomitant]
     Dosage: 100 MG TOTAL DAILY
     Route: 048
     Dates: start: 20080205, end: 20080317
  8. NEORAL [Concomitant]
     Dosage: 50 MG TOTAL DAILY
     Route: 048
     Dates: start: 20080318, end: 20080331
  9. NEORAL [Concomitant]
     Dosage: 25 MG TOTAL DAILY
     Route: 048
     Dates: start: 20080401, end: 20080421
  10. LIPUR [Concomitant]
     Dosage: UNKNOWN
     Route: 048

REACTIONS (4)
  - HAEMOGLOBIN URINE PRESENT [None]
  - METABOLIC ACIDOSIS [None]
  - MYOGLOBIN URINE PRESENT [None]
  - RENAL FAILURE ACUTE [None]
